FAERS Safety Report 5866919-X (Version None)
Quarter: 2008Q3

REPORT INFORMATION
  Report Type: 
  Country: None (occurrence: None)
  Receive Date: 20080827
  Receipt Date: 20080819
  Transmission Date: 20090109
  Serious: Yes (Hospitalization)
  Sender: FDA-Public Use
  Company Number: 2008JP000055

PATIENT
  Age: 82 Year
  Sex: Female

DRUGS (11)
  1. TACROLIMUS [Suspect]
     Indication: RHEUMATOID ARTHRITIS
     Dosage: 1.5 MG, ORAL
     Route: 048
     Dates: start: 20050728, end: 20060622
  2. PREDNISOLONE [Concomitant]
  3. INFREE S (INDOMETACIN) PER ORAL NOS [Concomitant]
  4. TAKEPRON (LANSOPRAZOLE) PER ORAL NOS [Concomitant]
  5. ALFAROL (ALFACALCIDOL) PER ORAL NOS [Concomitant]
  6. MUCOSTA (REBAMIPIDE) PER ORAL NOS [Concomitant]
  7. LENDORMIN (BROTIZOLAM) PER ORAL NOS [Concomitant]
  8. WARFARIN (WARFARIN) PER ORAL NOS [Concomitant]
  9. LASIX (FUROSEMIDE) PER ORAL NOS [Concomitant]
  10. ITOROL (ISOSORBIDE MONONITRATE) PER ORAL NOS [Concomitant]
  11. NITROPEN (GLYCERYL TRINITRATE) FORMULATION UNKNOWN [Concomitant]

REACTIONS (2)
  - CHOLECYSTITIS [None]
  - MYOCARDIAL INFARCTION [None]
